FAERS Safety Report 15099310 (Version 7)
Quarter: 2025Q4

REPORT INFORMATION
  Report Type: Report from Study
  Country: US (occurrence: US)
  Receive Date: 20180702
  Receipt Date: 20251209
  Transmission Date: 20260118
  Serious: Yes (Other)
  Sender: TAKEDA
  Company Number: US-SHIRE-US201823104

PATIENT
  Age: 61 Year
  Sex: Female

DRUGS (2)
  1. HUMAN IMMUNOGLOBULIN G [Suspect]
     Active Substance: HUMAN IMMUNOGLOBULIN G
     Indication: Hypogammaglobulinaemia
     Dosage: UNK
  2. HUMAN IMMUNOGLOBULIN G [Suspect]
     Active Substance: HUMAN IMMUNOGLOBULIN G
     Indication: Primary immunodeficiency syndrome

REACTIONS (11)
  - Bronchitis [Unknown]
  - Systemic lupus erythematosus [Unknown]
  - Sinusitis [Unknown]
  - Arthropod bite [Unknown]
  - Illness [Unknown]
  - Insomnia [Unknown]
  - Malaise [Recovering/Resolving]
  - Fatigue [Unknown]
  - Staphylococcal infection [Unknown]
  - Blood immunoglobulin G decreased [Recovering/Resolving]
  - Product dose omission issue [Unknown]

NARRATIVE: CASE EVENT DATE: 20221021
